FAERS Safety Report 13180008 (Version 2)
Quarter: 2017Q1

REPORT INFORMATION
  Report Type: Report from Study
  Country: US (occurrence: US)
  Receive Date: 20170202
  Receipt Date: 20170217
  Transmission Date: 20170428
  Serious: Yes (Hospitalization)
  Sender: FDA-Public Use
  Company Number: PHEH2017US003085

PATIENT
  Sex: Female

DRUGS (2)
  1. SANDOSTATIN LAR DEPOT [Suspect]
     Active Substance: OCTREOTIDE ACETATE
     Dosage: 30 MG, QW3 (EVERY THREE WEEKS)
     Route: 065
  2. SANDOSTATIN LAR DEPOT [Suspect]
     Active Substance: OCTREOTIDE ACETATE
     Indication: PRODUCT USED FOR UNKNOWN INDICATION
     Dosage: 20 MG, QW3 (EVERY THREE WEEKS)
     Route: 065

REACTIONS (3)
  - Malaise [Recovering/Resolving]
  - Blood pressure decreased [Unknown]
  - Inappropriate schedule of drug administration [Unknown]
